FAERS Safety Report 8073555-6 (Version None)
Quarter: 2012Q1

REPORT INFORMATION
  Report Type: 
  Country: None (occurrence: None)
  Receive Date: 20120126
  Receipt Date: 20120120
  Transmission Date: 20120608
  Serious: No
  Sender: FDA-Public Use
  Company Number: US-PFIZER INC-2012017217

PATIENT
  Sex: Female
  Weight: 65.76 kg

DRUGS (9)
  1. ZETIA [Concomitant]
     Dosage: 10 MG, 1X/DAY
  2. LASIX [Concomitant]
     Dosage: 20 MG, 1X/DAY
  3. MULTI-VITAMINS [Concomitant]
     Dosage: UNK, 1X/DAY
  4. LYRICA [Suspect]
     Indication: FIBROMYALGIA
     Dosage: 50 MG, 3X/DAY
     Route: 048
     Dates: start: 20080101
  5. GEMFIBROZIL [Concomitant]
     Dosage: 600 MG, 2X/DAY
  6. LISINOPRIL [Concomitant]
     Dosage: 10 MG, 1X/DAY
  7. EFFEXOR [Concomitant]
     Dosage: 75 MG, 1X/DAY
  8. AMLODIPINE [Concomitant]
     Dosage: 5 MG, 1X/DAY
  9. SPIRIVA [Concomitant]
     Dosage: UNK, 1X/DAY

REACTIONS (6)
  - SINUS HEADACHE [None]
  - MALAISE [None]
  - SNEEZING [None]
  - RHINORRHOEA [None]
  - NASOPHARYNGITIS [None]
  - COUGH [None]
